FAERS Safety Report 14775782 (Version 9)
Quarter: 2018Q4

REPORT INFORMATION
  Report Type: Spontaneous
  Country: JP (occurrence: JP)
  Receive Date: 20180418
  Receipt Date: 20181016
  Transmission Date: 20190204
  Serious: Yes (Hospitalization, Other)
  Sender: FDA-Public Use
  Company Number: PHJP2018JP008423

PATIENT
  Age: 38 Year
  Sex: Female

DRUGS (2)
  1. DICLOFENAC [Suspect]
     Active Substance: DICLOFENAC
     Indication: HEADACHE
     Dosage: UNK
     Route: 048
  2. LOXOPROFEN [Suspect]
     Active Substance: LOXOPROFEN
     Indication: HEADACHE
     Dosage: UNK
     Route: 065

REACTIONS (6)
  - Butterfly rash [Unknown]
  - Rash [Unknown]
  - Systemic lupus erythematosus [Unknown]
  - Headache [Recovering/Resolving]
  - Meningitis aseptic [Unknown]
  - Nuchal rigidity [Unknown]
